FAERS Safety Report 17206145 (Version 1)
Quarter: 2019Q4

REPORT INFORMATION
  Report Type: Spontaneous
  Country: BE (occurrence: BE)
  Receive Date: 20191227
  Receipt Date: 20191227
  Transmission Date: 20200122
  Serious: Yes (Other)
  Sender: FDA-Public Use
  Company Number: BE-TEVA-2019-BE-1157365

PATIENT
  Sex: Male

DRUGS (1)
  1. EPOSIN [Suspect]
     Active Substance: ETOPOSIDE
     Route: 042

REACTIONS (3)
  - Pain [Unknown]
  - Peripheral swelling [Unknown]
  - Erythema [Unknown]
